FAERS Safety Report 4749759-4 (Version None)
Quarter: 2005Q3

REPORT INFORMATION
  Report Type: 
  Country: None (occurrence: None)
  Receive Date: 20050819
  Receipt Date: 20050819
  Transmission Date: 20060218
  Serious: Yes (Disabling)
  Sender: FDA-Public Use
  Company Number: None

PATIENT
  Age: 47 Year
  Weight: 99.7913 kg

DRUGS (3)
  1. LIPITOR [Suspect]
     Indication: BLOOD CHOLESTEROL INCREASED
     Dosage: 10 DAILY PO
     Route: 048
     Dates: start: 20041201, end: 20050715
  2. CLOTRIMAZOLE PROPHYLACTIC [Concomitant]
  3. MULTI-VITAMIN [Concomitant]

REACTIONS (9)
  - ACTIVITIES OF DAILY LIVING IMPAIRED [None]
  - COGNITIVE DETERIORATION [None]
  - DECREASED INTEREST [None]
  - DISTURBANCE IN ATTENTION [None]
  - DRUG DOSE OMISSION [None]
  - DYSPHASIA [None]
  - FEELING ABNORMAL [None]
  - IMPAIRED WORK ABILITY [None]
  - LETHARGY [None]
